FAERS Safety Report 19907179 (Version 1)
Quarter: 2021Q4

REPORT INFORMATION
  Report Type: Report from Study
  Country: US (occurrence: US)
  Receive Date: 20211001
  Receipt Date: 20211001
  Transmission Date: 20220303
  Serious: Yes (Other)
  Sender: FDA-Public Use
  Company Number: US-BRISTOL-MYERS SQUIBB COMPANY-BMS-2021-047353

PATIENT
  Age: 54 Year
  Sex: Male

DRUGS (1)
  1. ABATACEPT [Suspect]
     Active Substance: ABATACEPT
     Indication: Genitourinary symptom
     Dosage: 125 MILLIGRAM, QWK
     Route: 058
     Dates: start: 202105

REACTIONS (4)
  - Suicidal ideation [Unknown]
  - Cluster headache [Unknown]
  - Mobility decreased [Unknown]
  - Product use in unapproved indication [Unknown]
